FAERS Safety Report 22112411 (Version 2)
Quarter: 2023Q1

REPORT INFORMATION
  Report Type: Spontaneous
  Country: JP (occurrence: JP)
  Receive Date: 20230319
  Receipt Date: 20230323
  Transmission Date: 20230418
  Serious: Yes (Hospitalization, Other)
  Sender: FDA-Public Use
  Company Number: JP-BAYER-2023A033720

PATIENT
  Age: 79 Year
  Sex: Male

DRUGS (1)
  1. XARELTO [Suspect]
     Active Substance: RIVAROXABAN
     Indication: Atrial fibrillation
     Route: 048

REACTIONS (4)
  - Cerebral haematoma [Unknown]
  - Cerebral haemorrhage [Unknown]
  - Mental impairment [Unknown]
  - Hemiplegia [Unknown]
